FAERS Safety Report 10840250 (Version 1)
Quarter: 2015Q1

REPORT INFORMATION
  Report Type: Report from Study
  Country: US (occurrence: US)
  Receive Date: 20150220
  Receipt Date: 20150220
  Transmission Date: 20150721
  Serious: Yes (Hospitalization, Other)
  Sender: FDA-Public Use
  Company Number: US-ABBVIE-14P-163-1249616-00

PATIENT
  Age: 45 Year
  Sex: Female
  Weight: 73 kg

DRUGS (4)
  1. PRILOSEC [Concomitant]
     Active Substance: OMEPRAZOLE MAGNESIUM
     Indication: PRODUCT USED FOR UNKNOWN INDICATION
  2. HUMIRA [Suspect]
     Active Substance: ADALIMUMAB
     Indication: PSORIASIS
     Dates: start: 201106, end: 20140510
  3. NAPROSYN [Concomitant]
     Active Substance: NAPROXEN
     Indication: PRODUCT USED FOR UNKNOWN INDICATION
  4. HEXAVITAMIN [Concomitant]
     Indication: PRODUCT USED FOR UNKNOWN INDICATION
     Route: 048

REACTIONS (19)
  - Fatigue [Not Recovered/Not Resolved]
  - Dyspnoea [Unknown]
  - C-reactive protein increased [Unknown]
  - Systemic inflammatory response syndrome [Unknown]
  - Chest pain [Unknown]
  - Pericardial effusion [Recovering/Resolving]
  - Pharyngeal inflammation [Unknown]
  - Muscular weakness [Unknown]
  - Pneumonia [Recovering/Resolving]
  - Pericarditis [Recovering/Resolving]
  - Pleuritic pain [Unknown]
  - Oesophagitis [Unknown]
  - Cough [Unknown]
  - Arthralgia [Unknown]
  - Weight decreased [Unknown]
  - Syncope [Recovered/Resolved]
  - Arthralgia [Not Recovered/Not Resolved]
  - Neck pain [Unknown]
  - Diarrhoea [Unknown]

NARRATIVE: CASE EVENT DATE: 201402
